FAERS Safety Report 6723638-5 (Version None)
Quarter: 2010Q2

REPORT INFORMATION
  Report Type: 
  Country: None (occurrence: None)
  Receive Date: 20100513
  Receipt Date: 20100504
  Transmission Date: 20101027
  Serious: Yes (Hospitalization)
  Sender: FDA-Public Use
  Company Number: PHHY2010SE29283

PATIENT
  Sex: Female

DRUGS (7)
  1. ACLASTA [Suspect]
     Indication: OSTEOPOROSIS
     Dosage: 5 MG
     Dates: start: 20091124
  2. ALVEDON [Concomitant]
     Dosage: 125 MG
     Route: 048
  3. ENTOCORT EC [Concomitant]
     Dosage: 3 MG
  4. ASACOL [Concomitant]
     Dosage: 800 MG
  5. OMEPRAZOLE [Concomitant]
     Dosage: 20 MG
  6. DIAZEPAM [Concomitant]
     Dosage: 2 MG
  7. SELOKEN ZOC [Concomitant]
     Dosage: 200 MG

REACTIONS (4)
  - APHASIA [None]
  - ATRIAL FIBRILLATION [None]
  - CEREBRAL INFARCTION [None]
  - DISORIENTATION [None]
